FAERS Safety Report 5001891-6 (Version None)
Quarter: 2006Q2

REPORT INFORMATION
  Report Type: 
  Country: None (occurrence: None)
  Receive Date: 20060515
  Receipt Date: 20060504
  Transmission Date: 20061013
  Serious: Yes (Hospitalization)
  Sender: FDA-Public Use
  Company Number: CG-MERCK-0605USA01671

PATIENT
  Age: 40 Year
  Sex: Female
  Weight: 67 kg

DRUGS (1)
  1. STROMECTOL [Suspect]
     Route: 048
     Dates: start: 20060223, end: 20060223

REACTIONS (7)
  - ASTHENIA [None]
  - COUGH [None]
  - EYELID OEDEMA [None]
  - HEADACHE [None]
  - PYREXIA [None]
  - VERTIGO [None]
  - VOMITING [None]
